FAERS Safety Report 8433094-7 (Version None)
Quarter: 2012Q2

REPORT INFORMATION
  Report Type: 
  Country: None (occurrence: None)
  Receive Date: 20120613
  Receipt Date: 20120604
  Transmission Date: 20120825
  Serious: Yes (Other)
  Sender: FDA-Public Use
  Company Number: US-ASTRAZENECA-2012SE37297

PATIENT
  Age: 51 Year
  Sex: Female

DRUGS (6)
  1. FOLBIC VITAMIN B COMPLEX [Concomitant]
     Route: 048
  2. ASPIRIN [Concomitant]
     Route: 048
  3. SEROQUEL [Suspect]
     Route: 048
  4. ENSURE CLEAR [Concomitant]
     Route: 048
  5. CALCIUM CARBONATE [Concomitant]
     Route: 048
  6. ONE A DAY [Concomitant]
     Route: 048

REACTIONS (2)
  - TARDIVE DYSKINESIA [None]
  - DRUG HYPERSENSITIVITY [None]
